FAERS Safety Report 20835283 (Version 1)
Quarter: 2022Q2

REPORT INFORMATION
  Report Type: Spontaneous
  Country: MX (occurrence: MX)
  Receive Date: 20220516
  Receipt Date: 20220516
  Transmission Date: 20220721
  Serious: Yes (Other)
  Sender: FDA-Public Use
  Company Number: MX-BAYER-2021-172579

PATIENT
  Sex: Female

DRUGS (1)
  1. LEVONORGESTREL [Suspect]
     Active Substance: LEVONORGESTREL
     Indication: Contraception
     Dosage: UNKNOWN
     Route: 059

REACTIONS (4)
  - Pregnancy with implant contraceptive [Unknown]
  - Drug ineffective [Unknown]
  - Product monitoring error [Unknown]
  - Off label use [Unknown]
